FAERS Safety Report 7905977-5 (Version None)
Quarter: 2011Q4

REPORT INFORMATION
  Report Type: 
  Country: None (occurrence: None)
  Receive Date: 20111109
  Receipt Date: 20111109
  Transmission Date: 20120403
  Serious: Yes (Other)
  Sender: FDA-Public Use
  Company Number: None

PATIENT
  Sex: Female
  Weight: 61.2356 kg

DRUGS (1)
  1. BONIVA [Suspect]
     Indication: OSTEOPENIA
     Dosage: 3MG/3ML EVERY 3 MOS. IV INJECTION
     Route: 042

REACTIONS (6)
  - VITAMIN D DECREASED [None]
  - ARTHRALGIA [None]
  - PAIN IN EXTREMITY [None]
  - BLOOD CALCIUM DECREASED [None]
  - DYSPNOEA [None]
  - MUSCULOSKELETAL CHEST PAIN [None]
